FAERS Safety Report 9086125 (Version 1)
Quarter: 2013Q1

REPORT INFORMATION
  Report Type: Report from Study
  Country: US (occurrence: US)
  Receive Date: 20130131
  Receipt Date: 20130131
  Transmission Date: 20140127
  Serious: No
  Sender: FDA-Public Use
  Company Number: US-ABBOTT-12P-163-0986422-00

PATIENT
  Age: 35 Year
  Sex: Male

DRUGS (4)
  1. HUMIRA [Suspect]
     Indication: PSORIATIC ARTHROPATHY
     Dates: start: 201004, end: 201205
  2. HUMIRA [Suspect]
     Indication: COLITIS
     Dosage: LOADING DOSE
     Dates: start: 20120920
  3. LIALDA [Concomitant]
     Indication: COLITIS
     Dosage: 4 PILLS DAILY
  4. AMITRIPTYLINE [Concomitant]
     Indication: COLITIS
     Dosage: DAILY

REACTIONS (1)
  - Drug ineffective [Not Recovered/Not Resolved]
